APPROVED DRUG PRODUCT: ILEVRO
Active Ingredient: NEPAFENAC
Strength: 0.3%
Dosage Form/Route: SUSPENSION/DROPS;OPHTHALMIC
Application: N203491 | Product #001
Applicant: HARROW EYE LLC
Approved: Oct 16, 2012 | RLD: Yes | RS: Yes | Type: RX

PATENTS:
Patent 9662398 | Expires: Dec 1, 2030
Patent 8921337 | Expires: Mar 31, 2032